FAERS Safety Report 4895396-0 (Version None)
Quarter: 2006Q1

REPORT INFORMATION
  Report Type: 
  Country: None (occurrence: None)
  Receive Date: 20060130
  Receipt Date: 20050204
  Transmission Date: 20060701
  Serious: No
  Sender: FDA-Public Use
  Company Number: US-GLAXOSMITHKLINE-A0543972A

PATIENT
  Sex: Female

DRUGS (1)
  1. COMBIVIR [Suspect]
     Dosage: 2CAP TWICE PER DAY
     Route: 048
     Dates: start: 20050115

REACTIONS (2)
  - CHEST PAIN [None]
  - HEADACHE [None]
